FAERS Safety Report 18508779 (Version 2)
Quarter: 2020Q4

REPORT INFORMATION
  Report Type: Spontaneous
  Country: US (occurrence: US)
  Receive Date: 20201117
  Receipt Date: 20201127
  Transmission Date: 20210114
  Serious: Yes (Hospitalization, Other)
  Sender: FDA-Public Use
  Company Number: US-MTPC-MTDA2020-0069745

PATIENT
  Age: 75 Year
  Sex: Male

DRUGS (1)
  1. RADICAVA [Suspect]
     Active Substance: EDARAVONE
     Indication: AMYOTROPHIC LATERAL SCLEROSIS
     Dosage: 60 MILLIGRAM, QD
     Route: 042
     Dates: start: 20201106, end: 20201109

REACTIONS (8)
  - Device related sepsis [Recovering/Resolving]
  - Dyspnoea [Recovering/Resolving]
  - Chills [Unknown]
  - Pyrexia [Recovering/Resolving]
  - Feeling cold [Unknown]
  - Tremor [Recovering/Resolving]
  - Tachycardia [Recovering/Resolving]
  - Hypertension [Unknown]

NARRATIVE: CASE EVENT DATE: 202011
